FAERS Safety Report 8010971-2 (Version None)
Quarter: 2011Q4

REPORT INFORMATION
  Report Type: 
  Country: None (occurrence: None)
  Receive Date: 20111228
  Receipt Date: 20111221
  Transmission Date: 20120403
  Serious: Yes (Other)
  Sender: FDA-Public Use
  Company Number: FR-PFIZER INC-2011310942

PATIENT
  Age: 69 Year
  Sex: Male

DRUGS (6)
  1. PREDNISONE TAB [Concomitant]
     Indication: ARTHRITIS
     Dosage: 6 MG DAILY
  2. ATORVASTATIN CALCIUM [Concomitant]
  3. ALENDRONATE SODIUM [Concomitant]
  4. SULFASALAZINE [Suspect]
     Indication: MONARTHRITIS
     Dosage: UNK
  5. LEVOTHYROXINE SODIUM [Concomitant]
  6. HYZAAR [Concomitant]

REACTIONS (3)
  - METASTASES TO LUNG [None]
  - RENAL NEOPLASM [None]
  - METASTASES TO PLEURA [None]
